FAERS Safety Report 5958528-9 (Version None)
Quarter: 2008Q4

REPORT INFORMATION
  Report Type: 
  Country: None (occurrence: None)
  Receive Date: 20081119
  Receipt Date: 20081114
  Transmission Date: 20090506
  Serious: Yes (Other)
  Sender: FDA-Public Use
  Company Number: PHEH2008US05967

PATIENT
  Sex: Male

DRUGS (3)
  1. TEKTURNA [Suspect]
     Indication: HYPERTENSION
     Dosage: 150 MG, QD
     Route: 048
     Dates: start: 20070801, end: 20080529
  2. MICARDIS [Concomitant]
     Indication: HYPERTENSION
  3. ASPIRIN [Concomitant]
     Dosage: 81 MG, QD
     Route: 048

REACTIONS (7)
  - BIOPSY SITE UNSPECIFIED ABNORMAL [None]
  - HISTOLOGY ABNORMAL [None]
  - POROKERATOSIS [None]
  - RASH [None]
  - RASH PRURITIC [None]
  - SKIN OEDEMA [None]
  - SKIN REACTION [None]
